FAERS Safety Report 5675566-4 (Version None)
Quarter: 2008Q1

REPORT INFORMATION
  Report Type: 
  Country: None (occurrence: None)
  Receive Date: 20080321
  Receipt Date: 20080311
  Transmission Date: 20080703
  Serious: Yes (Other)
  Sender: FDA-Public Use
  Company Number: GB-JNJFOC-20070204402

PATIENT
  Sex: Female
  Weight: 50.7 kg

DRUGS (5)
  1. VERMOX [Suspect]
     Indication: HELMINTHIC INFECTION
     Route: 048
  2. GAVISCON [Concomitant]
     Route: 065
  3. CALAMINE [Concomitant]
     Route: 065
  4. CHLORPHENAMINE [Concomitant]
     Route: 065
  5. PARACETAMOL [Concomitant]
     Route: 065

REACTIONS (2)
  - DRUG EXPOSURE DURING PREGNANCY [None]
  - HERPES ZOSTER [None]
